FAERS Safety Report 7395572-1 (Version None)
Quarter: 2011Q2

REPORT INFORMATION
  Report Type: 
  Country: None (occurrence: None)
  Receive Date: 20110405
  Receipt Date: 20110330
  Transmission Date: 20111010
  Serious: Yes (Death, Life-Threatening, Hospitalization, Other)
  Sender: FDA-Public Use
  Company Number: PHHY2010JP30973

PATIENT
  Sex: Male
  Weight: 81 kg

DRUGS (13)
  1. AFINITOR [Suspect]
     Indication: METASTATIC RENAL CELL CARCINOMA
     Dosage: UNK
     Route: 048
     Dates: start: 20100420, end: 20100507
  2. NEXAVAR [Concomitant]
     Dosage: 800 MG, UNK
     Route: 048
     Dates: start: 20080808, end: 20090101
  3. MAGNESIUM OXIDE [Concomitant]
     Dosage: 3 G, UNK
     Route: 048
     Dates: start: 20090612
  4. SUMIFERON [Concomitant]
     Dosage: 6000000 IU, UNK
     Route: 041
     Dates: start: 19990401, end: 20060101
  5. SUTENT [Concomitant]
     Dosage: 50 MG, UNK
     Route: 048
     Dates: start: 20090815, end: 20100329
  6. NOVAMIN [Concomitant]
     Dosage: 15 MG, UNK
     Route: 048
     Dates: start: 20100416
  7. OXYCONTIN [Concomitant]
     Dosage: 15 MG, UNK
     Route: 048
     Dates: start: 20100330
  8. LOXONIN [Concomitant]
     Dosage: 120 MG, UNK
     Route: 048
     Dates: start: 20090116
  9. PURSENNID [Concomitant]
     Dosage: 24 MG, UNK
     Route: 048
     Dates: start: 20100416
  10. OXINORM [Concomitant]
     Dosage: 2.5 MG, UNK
     Route: 048
     Dates: start: 20100330
  11. TAKEPRON [Concomitant]
     Dosage: 30 MG, UNK
     Route: 048
     Dates: start: 20100109
  12. SELBEX [Concomitant]
     Dosage: 100 MG, UNK
     Route: 048
     Dates: start: 20090116
  13. RADIATION THERAPY [Concomitant]
     Dosage: UNK
     Dates: start: 20100408, end: 20100421

REACTIONS (5)
  - EYELID OEDEMA [None]
  - HAEMATEMESIS [None]
  - SKIN EXFOLIATION [None]
  - RASH GENERALISED [None]
  - NEOPLASM MALIGNANT [None]
